FAERS Safety Report 7903210-1 (Version None)
Quarter: 2011Q4

REPORT INFORMATION
  Report Type: 
  Country: None (occurrence: None)
  Receive Date: 20111109
  Receipt Date: 20111026
  Transmission Date: 20120403
  Serious: Yes (Hospitalization, Other)
  Sender: FDA-Public Use
  Company Number: IL-SANOFI-AVENTIS-2011SA061412

PATIENT
  Age: 90 Year
  Sex: Male

DRUGS (10)
  1. HMG COA REDUCTASE INHIBITORS [Concomitant]
     Route: 065
  2. RAMIPRIL [Concomitant]
     Route: 065
  3. METFORMIN HCL [Concomitant]
     Route: 065
  4. ALL OTHER THERAPEUTIC PRODUCTS [Concomitant]
     Route: 065
  5. ASPIRIN [Concomitant]
     Route: 065
  6. FUSID [Concomitant]
     Route: 065
  7. OMEPRADEX [Concomitant]
     Route: 065
  8. ATENOLOL [Concomitant]
     Route: 065
  9. COUMADIN [Suspect]
     Dosage: FROM AUG-2011: 2.5 MG 5X/WEEK. FROM SEP-2011: 2.5 MG 6X/WEEK.
     Route: 065
     Dates: start: 20110801, end: 20110901
  10. MULTAQ [Suspect]
     Route: 048
     Dates: start: 20110914, end: 20110919

REACTIONS (5)
  - INTERNATIONAL NORMALISED RATIO INCREASED [None]
  - HEPATOCELLULAR INJURY [None]
  - ANAEMIA [None]
  - BLOOD CREATININE INCREASED [None]
  - BACK PAIN [None]
